FAERS Safety Report 5393497-4 (Version None)
Quarter: 2007Q3

REPORT INFORMATION
  Report Type: 
  Country: None (occurrence: None)
  Receive Date: 20070723
  Receipt Date: 20060703
  Transmission Date: 20080115
  Serious: No
  Sender: FDA-Public Use
  Company Number: A0610990A

PATIENT
  Age: 62 Year
  Sex: Female

DRUGS (7)
  1. AVANDIA [Suspect]
     Dosage: 4MG PER DAY
     Route: 048
     Dates: start: 20060531, end: 20060630
  2. GLUCOPHAGE [Concomitant]
  3. COREG [Concomitant]
  4. TRICOR [Concomitant]
  5. AMARYL [Concomitant]
  6. HYDROCHLOROTHIAZIDE [Concomitant]
  7. ASPIRIN [Concomitant]

REACTIONS (3)
  - HEADACHE [None]
  - HYPERTENSION [None]
  - RASH PRURITIC [None]
